FAERS Safety Report 17279527 (Version 2)
Quarter: 2020Q1

REPORT INFORMATION
  Report Type: Report from Study
  Country: US (occurrence: US)
  Receive Date: 20200116
  Receipt Date: 20200121
  Transmission Date: 20200409
  Serious: No
  Sender: FDA-Public Use
  Company Number: US-SA-2020SA005842

PATIENT
  Age: 27 Year
  Sex: Female

DRUGS (2)
  1. DUPILUMAB [Suspect]
     Active Substance: DUPILUMAB
     Indication: DERMATITIS ATOPIC
     Dosage: UNK
  2. DUPILUMAB [Suspect]
     Active Substance: DUPILUMAB
     Dosage: 300 MG, QOW
     Dates: start: 2019

REACTIONS (3)
  - Incorrect dose administered by device [Unknown]
  - Rebound atopic dermatitis [Unknown]
  - Device leakage [Unknown]
